FAERS Safety Report 13308536 (Version 1)
Quarter: 2017Q1

REPORT INFORMATION
  Report Type: Spontaneous
  Country: US (occurrence: US)
  Receive Date: 20170308
  Receipt Date: 20170308
  Transmission Date: 20170428
  Serious: Yes (Death)
  Sender: FDA-Public Use
  Company Number: None

PATIENT
  Age: 84 Year
  Sex: Male

DRUGS (15)
  1. FLUDROCORT [Concomitant]
  2. MYCOPHENOLIC 360MG [Suspect]
     Active Substance: MYCOPHENOLIC ACID
     Indication: RENAL TRANSPLANT
     Route: 048
     Dates: start: 20140810, end: 20170218
  3. CALCITROL [Concomitant]
     Active Substance: CALCITRIOL
  4. VITAMIN D3 [Concomitant]
     Active Substance: CHOLECALCIFEROL
  5. ISOSORB [Concomitant]
  6. BACTRIM [Concomitant]
     Active Substance: SULFAMETHOXAZOLE\TRIMETHOPRIM
  7. HUMALOG [Concomitant]
     Active Substance: INSULIN LISPRO
  8. TACROLIMUS. [Suspect]
     Active Substance: TACROLIMUS
     Indication: RENAL TRANSPLANT
     Route: 048
     Dates: start: 20140810, end: 20170219
  9. LASIX [Concomitant]
     Active Substance: FUROSEMIDE
  10. SODIUM [Concomitant]
     Active Substance: SODIUM
  11. ASPIRIN. [Concomitant]
     Active Substance: ASPIRIN
  12. COUMADIN [Concomitant]
     Active Substance: WARFARIN SODIUM
  13. COREG [Concomitant]
     Active Substance: CARVEDILOL
  14. ZANTAC [Concomitant]
     Active Substance: RANITIDINE HYDROCHLORIDE
  15. ESCITA [Concomitant]

REACTIONS (1)
  - Death [None]

NARRATIVE: CASE EVENT DATE: 20170218
